FAERS Safety Report 9186360 (Version 4)
Quarter: 2014Q3

REPORT INFORMATION
  Report Type: Spontaneous
  Country: US (occurrence: None)
  Receive Date: 20130321
  Receipt Date: 20140815
  Transmission Date: 20150326
  Serious: Yes (Hospitalization)
  Sender: FDA-Public Use
  Company Number: 2013US001214

PATIENT
  Age: 54 Year
  Sex: Male
  Weight: 59 kg

DRUGS (3)
  1. METHOTREXATE (METHOTREXATE) [Concomitant]
     Active Substance: METHOTREXATE
  2. ICLUSIG [Suspect]
     Active Substance: PONATINIB
     Indication: ACUTE LYMPHOCYTIC LEUKAEMIA
     Route: 048
     Dates: start: 201301, end: 20130214
  3. QUESTRAN (COLESTYRAMINE) [Concomitant]

REACTIONS (7)
  - Fatigue [None]
  - Mobility decreased [None]
  - Bacterial infection [None]
  - Blood count abnormal [None]
  - Diarrhoea [None]
  - Muscular weakness [None]
  - Leukaemia recurrent [None]

NARRATIVE: CASE EVENT DATE: 201301
